FAERS Safety Report 8373430 (Version 2)
Quarter: 2013Q1

REPORT INFORMATION
  Report Type: Report from Study
  Country: PR (occurrence: PR)
  Receive Date: 20120128
  Receipt Date: 20130129
  Transmission Date: 20140127
  Serious: No
  Sender: FDA-Public Use
  Company Number: PR-ABBOTT-11P-131-0840290-00

PATIENT
  Sex: Female

DRUGS (8)
  1. HUMIRA 40 MG/0.8 ML PEN [Suspect]
     Indication: PSORIASIS
     Route: 058
     Dates: start: 2010, end: 201106
  2. HUMIRA 40 MG/0.8 ML PEN [Suspect]
     Route: 058
     Dates: start: 20110921, end: 201201
  3. PANADOL [Suspect]
     Indication: PRODUCT USED FOR UNKNOWN INDICATION
     Dates: start: 201106, end: 201106
  4. PUVA [Concomitant]
     Indication: PSORIASIS
  5. PRENATAL VITAMINS [Concomitant]
     Indication: VITAMIN SUPPLEMENTATION
     Dosage: 2 TABS DAILY
     Route: 048
     Dates: end: 201002
  6. FOLIC ACID [Concomitant]
     Indication: VITAMIN SUPPLEMENTATION
     Dosage: 1 TAB DAILY
     Route: 048
     Dates: end: 201202
  7. IRON [Concomitant]
     Indication: MINERAL SUPPLEMENTATION
     Dosage: 325 MG/1 TAB DAILY
     Route: 048
     Dates: start: 201201, end: 201202
  8. ZANTAC [Concomitant]
     Indication: PRODUCT USED FOR UNKNOWN INDICATION
     Dosage: 300 MG/1 TAB DAILY PRN
     Route: 048
     Dates: end: 201202

REACTIONS (5)
  - Asthma [Unknown]
  - Influenza [Recovered/Resolved]
  - Drug hypersensitivity [Recovered/Resolved]
  - Allergic oedema [Recovered/Resolved]
  - Dermatitis allergic [Recovered/Resolved]
